FAERS Safety Report 8334350-3 (Version None)
Quarter: 2012Q2

REPORT INFORMATION
  Report Type: 
  Country: None (occurrence: None)
  Receive Date: 20120503
  Receipt Date: 20120427
  Transmission Date: 20120825
  Serious: Yes (Other)
  Sender: FDA-Public Use
  Company Number: PHHY2012IN037006

PATIENT
  Age: 67 Year
  Sex: Male

DRUGS (2)
  1. CLONAZEPAM [Suspect]
  2. ESCITALOPRAM [Interacting]
     Indication: DEPRESSION
     Dosage: 10 MG/DAY

REACTIONS (2)
  - HYPOMANIA [None]
  - DRUG INTERACTION [None]
